FAERS Safety Report 7298749-9 (Version None)
Quarter: 2011Q1

REPORT INFORMATION
  Report Type: 
  Country: None (occurrence: None)
  Receive Date: 20110217
  Receipt Date: 20110214
  Transmission Date: 20110831
  Serious: Yes (Hospitalization, Other)
  Sender: FDA-Public Use
  Company Number: US-JNJFOC-20100807781

PATIENT
  Sex: Female

DRUGS (2)
  1. PREDNISONE [Suspect]
     Indication: SINUSITIS
  2. LEVAQUIN [Suspect]
     Indication: SINUSITIS
     Route: 048

REACTIONS (2)
  - TENDON RUPTURE [None]
  - ARTHROPATHY [None]
